FAERS Safety Report 4269522-0 (Version None)
Quarter: 2004Q1

REPORT INFORMATION
  Report Type: 
  Country: None (occurrence: None)
  Receive Date: 20040112
  Receipt Date: 20040112
  Transmission Date: 20041129
  Serious: Yes (Hospitalization)
  Sender: FDA-Public Use
  Company Number: None

PATIENT
  Age: 87 Year
  Sex: Male

DRUGS (8)
  1. FUROSEMIDE [Suspect]
     Indication: HYPERTENSION
     Dosage: 40 MG BID
     Dates: start: 20030611
  2. LISINOPRIL [Suspect]
     Indication: HYPERTENSION
     Dosage: 10 MG BID
     Dates: start: 19950601
  3. HYDROCHLOROTHIAZIDE [Suspect]
     Dosage: 25 MG QD
     Dates: start: 20030605
  4. TAMSULOSIN [Concomitant]
  5. GLYBURIDE [Concomitant]
  6. ISOSORBIDE [Concomitant]
  7. NITROGLYCERIN [Concomitant]
  8. CITALOPRAM [Concomitant]

REACTIONS (1)
  - RENAL FAILURE ACUTE [None]
